FAERS Safety Report 14434952 (Version 2)
Quarter: 2018Q1

REPORT INFORMATION
  Report Type: Spontaneous
  Country: CA (occurrence: CA)
  Receive Date: 20180125
  Receipt Date: 20180322
  Transmission Date: 20180509
  Serious: Yes (Hospitalization)
  Sender: FDA-Public Use
  Company Number: CA-TEVA-2018-CA-850240

PATIENT
  Age: 1 Decade
  Sex: Male

DRUGS (1)
  1. AMOXICILLIN. [Suspect]
     Active Substance: AMOXICILLIN
     Indication: BRONCHITIS
     Route: 065

REACTIONS (1)
  - Fixed eruption [Recovered/Resolved]
